FAERS Safety Report 9023936 (Version 1)
Quarter: 2013Q1

REPORT INFORMATION
  Report Type: Spontaneous
  Country: US (occurrence: US)
  Receive Date: 20130121
  Receipt Date: 20130121
  Transmission Date: 20140127
  Serious: No
  Sender: FDA-Public Use
  Company Number: US-PFIZER INC-2013019908

PATIENT
  Age: 69 Year
  Sex: Male

DRUGS (19)
  1. XELJANZ [Suspect]
     Dosage: 5 MG, 2X/DAY
     Route: 048
  2. SOMA [Concomitant]
     Dosage: 250MG
  3. LASIX [Concomitant]
     Dosage: 20 MG
  4. ANDROGEL [Concomitant]
     Dosage: 1% (25 MG)
  5. METHOTREXATE [Concomitant]
     Dosage: 2.5 MG
  6. FOLIC ACID [Concomitant]
     Dosage: 1 MG
  7. TOPROL XL [Concomitant]
     Dosage: 25 MG
  8. KLOR-CON [Concomitant]
     Dosage: 10 TAB 10MEQ ER
  9. OXYCODONE [Concomitant]
     Dosage: 5 MG
  10. CALCIUM 600 [Concomitant]
     Dosage: UNK
  11. PREDNISONE PAK [Concomitant]
     Dosage: 5 MG
  12. FISH OIL [Concomitant]
     Dosage: UNK
  13. STOOL SOFTENER [Concomitant]
     Dosage: 100MG
  14. CALCIUM MAGN /D [Concomitant]
     Dosage: UNK
  15. OXYCONTIN [Concomitant]
     Dosage: 10 MG CR
  16. VITAMIN B12 [Concomitant]
     Dosage: 500MCG
  17. CO-Q-10 [Concomitant]
     Dosage: 10 MG
  18. TYLENOL [Concomitant]
     Dosage: 500 MG
  19. MILK THISTLE [Concomitant]
     Dosage: UNK

REACTIONS (2)
  - Local swelling [Recovered/Resolved]
  - Gait disturbance [Recovered/Resolved]
